FAERS Safety Report 5923313-0 (Version None)
Quarter: 2008Q4

REPORT INFORMATION
  Report Type: 
  Country: None (occurrence: None)
  Receive Date: 20081015
  Receipt Date: 20080930
  Transmission Date: 20090506
  Serious: No
  Sender: FDA-Public Use
  Company Number: 238564J08USA

PATIENT
  Age: 36 Year
  Sex: Female
  Weight: 86 kg

DRUGS (2)
  1. REBIF [Suspect]
     Indication: MULTIPLE SCLEROSIS
     Dosage: 44 MCG, 3 IN 1 WEEKS, SUBCUTANEOUS
     Route: 058
     Dates: start: 20080425, end: 20080101
  2. GABAPENTIN [Concomitant]

REACTIONS (3)
  - BLOOD AMYLASE ABNORMAL [None]
  - LIPASE ABNORMAL [None]
  - LIVER FUNCTION TEST ABNORMAL [None]
